FAERS Safety Report 10466912 (Version 1)
Quarter: 2014Q3

REPORT INFORMATION
  Report Type: Spontaneous
  Country: US (occurrence: US)
  Receive Date: 20140922
  Receipt Date: 20140922
  Transmission Date: 20150326
  Serious: Yes (Hospitalization)
  Sender: FDA-Public Use
  Company Number: US-SA-2014SA128199

PATIENT

DRUGS (2)
  1. ANTIARRHYTHMICS, CLASS I AND III [Concomitant]
     Active Substance: UNSPECIFIED INGREDIENT
  2. MULTAQ [Suspect]
     Active Substance: DRONEDARONE
     Route: 065

REACTIONS (1)
  - Hospitalisation [Unknown]
